FAERS Safety Report 7541775-2 (Version None)
Quarter: 2011Q2

REPORT INFORMATION
  Report Type: 
  Country: None (occurrence: None)
  Receive Date: 20110524
  Receipt Date: 20110321
  Transmission Date: 20111010
  Serious: No
  Sender: FDA-Public Use
  Company Number: 029655

PATIENT
  Sex: Female

DRUGS (1)
  1. CIMZIA [Suspect]
     Indication: RHEUMATOID ARTHRITIS
     Dosage: 400 MG 1X/4 WEEKS, VIAL SUBCUTANEOUS
     Route: 058
     Dates: start: 20110317

REACTIONS (7)
  - SENSATION OF PRESSURE [None]
  - EYE SWELLING [None]
  - POLLAKIURIA [None]
  - UNEVALUABLE EVENT [None]
  - ABDOMINAL PAIN [None]
  - FEELING HOT [None]
  - WEIGHT INCREASED [None]
